FAERS Safety Report 17542661 (Version 2)
Quarter: 2020Q2

REPORT INFORMATION
  Report Type: Spontaneous
  Country: US (occurrence: US)
  Receive Date: 20200315
  Receipt Date: 20200612
  Transmission Date: 20200713
  Serious: Yes (Other)
  Sender: FDA-Public Use
  Company Number: US-AMGEN-USASP2020040772

PATIENT

DRUGS (1)
  1. PROLIA [Suspect]
     Active Substance: DENOSUMAB
     Indication: PRODUCT USED FOR UNKNOWN INDICATION
     Dosage: UNK
     Route: 065

REACTIONS (21)
  - Myocardial infarction [Unknown]
  - Pulmonary mass [Unknown]
  - Migraine [Unknown]
  - Dizziness postural [Unknown]
  - Aphasia [Unknown]
  - Fatigue [Unknown]
  - Musculoskeletal pain [Unknown]
  - Weight decreased [Unknown]
  - Tooth loss [Unknown]
  - Blood pressure increased [Unknown]
  - Nausea [Unknown]
  - Pneumonia bacterial [Unknown]
  - Malaise [Unknown]
  - Cardiac myxoma [Unknown]
  - Pain [Unknown]
  - Alopecia [Unknown]
  - Pyrexia [Unknown]
  - Gastric mucosal hypertrophy [Unknown]
  - Pancreatitis chronic [Unknown]
  - Toothache [Unknown]
  - Pain in extremity [Unknown]
